FAERS Safety Report 6439126-X (Version None)
Quarter: 2009Q4

REPORT INFORMATION
  Report Type: 
  Country: None (occurrence: None)
  Receive Date: 20091113
  Receipt Date: 20091110
  Transmission Date: 20100525
  Serious: Yes (Hospitalization)
  Sender: FDA-Public Use
  Company Number: FR-BRISTOL-MYERS SQUIBB COMPANY-14842629

PATIENT
  Age: 69 Year
  Sex: Female

DRUGS (1)
  1. HYDREA [Suspect]
     Indication: ESSENTIAL THROMBOCYTHAEMIA
     Route: 048
     Dates: start: 20060322

REACTIONS (1)
  - HAEMORRHAGIC STROKE [None]
